FAERS Safety Report 9424461 (Version 2)
Quarter: 2013Q3

REPORT INFORMATION
  Report Type: Spontaneous
  Country: US (occurrence: US)
  Receive Date: 20130729
  Receipt Date: 20130805
  Transmission Date: 20140515
  Serious: Yes (Hospitalization)
  Sender: FDA-Public Use
  Company Number: US-COVIDIEN/TYCO HEALTHCARE/MALLINCKRODT-T201303828

PATIENT
  Age: 10 Year
  Sex: Male

DRUGS (1)
  1. GABLOFEN [Suspect]
     Indication: MUSCLE SPASTICITY
     Dosage: 170 MCG/DAY
     Route: 037

REACTIONS (6)
  - Overdose [Unknown]
  - Unresponsive to stimuli [Unknown]
  - Dizziness [Unknown]
  - Oxygen saturation decreased [Unknown]
  - Somnolence [Unknown]
  - Incorrect route of drug administration [Unknown]
